FAERS Safety Report 4861028-0 (Version None)
Quarter: 2005Q4

REPORT INFORMATION
  Report Type: 
  Country: None (occurrence: None)
  Receive Date: 20051216
  Receipt Date: 20051130
  Transmission Date: 20060501
  Serious: Yes (Hospitalization)
  Sender: FDA-Public Use
  Company Number: 220232

PATIENT
  Age: 74 Year
  Sex: Male
  Weight: 198.4 kg

DRUGS (5)
  1. AVASTIN [Suspect]
     Indication: COLORECTAL CANCER METASTATIC
     Dosage: 450 MG, Q2W, INTRAVENOUS
     Route: 042
     Dates: start: 20051115
  2. IRINOTECAN HCL [Suspect]
     Indication: COLORECTAL CANCER METASTATIC
     Dosage: 335 MG, Q2W, INTRAVENOUS
     Route: 042
     Dates: start: 20051115
  3. FLUOROURACIL [Suspect]
     Indication: COLORECTAL CANCER METASTATIC
     Dosage: 790 MG, Q2W, INTRAVENOUS
     Route: 042
     Dates: start: 20051115
  4. LEUCOVORIN CALCIUM [Suspect]
     Indication: COLORECTAL CANCER METASTATIC
     Dosage: 390 MG, Q2W, INTRAVENOUS
     Route: 042
     Dates: start: 20051115
  5. INDAPAMIDE [Concomitant]

REACTIONS (7)
  - BLOOD UREA INCREASED [None]
  - DEHYDRATION [None]
  - DIARRHOEA [None]
  - MALAISE [None]
  - NAUSEA [None]
  - NEUTROPHIL COUNT INCREASED [None]
  - WHITE BLOOD CELL COUNT INCREASED [None]
